FAERS Safety Report 8817243 (Version 3)
Quarter: 2014Q3

REPORT INFORMATION
  Report Type: Spontaneous
  Country: US (occurrence: US)
  Receive Date: 20121004
  Receipt Date: 20140822
  Transmission Date: 20150326
  Serious: Yes (Hospitalization, Other)
  Sender: FDA-Public Use
  Company Number: US-009507513-2012SP036116

PATIENT
  Sex: Female
  Weight: 113.38 kg

DRUGS (1)
  1. NUVARING [Suspect]
     Active Substance: ETHINYL ESTRADIOL\ETONOGESTREL
     Indication: CONTRACEPTION
     Dosage: UNK
     Route: 067
     Dates: start: 20100608, end: 20100621

REACTIONS (9)
  - Abortion spontaneous [Recovered/Resolved]
  - Gestational diabetes [Recovered/Resolved]
  - Female sterilisation [Unknown]
  - Pregnancy [Recovered/Resolved]
  - Depression [Unknown]
  - Pregnancy [Recovered/Resolved]
  - Deep vein thrombosis [Unknown]
  - Knee operation [Unknown]
  - Mammoplasty [Unknown]

NARRATIVE: CASE EVENT DATE: 20100621
